FAERS Safety Report 9754607 (Version 1)
Quarter: 2013Q4

REPORT INFORMATION
  Report Type: Spontaneous
  Country: US (occurrence: US)
  Receive Date: 20131213
  Receipt Date: 20131213
  Transmission Date: 20140711
  Serious: No
  Sender: FDA-Public Use
  Company Number: US-GLAXOSMITHKLINE-A1002607A

PATIENT
  Age: 53 Year
  Sex: Female

DRUGS (1)
  1. NICODERM CQ 21MG [Suspect]
     Indication: EX-TOBACCO USER
     Dates: start: 20121113, end: 20121120

REACTIONS (11)
  - Malaise [Not Recovered/Not Resolved]
  - Chills [Recovered/Resolved]
  - Headache [Not Recovered/Not Resolved]
  - Vomiting [Recovered/Resolved]
  - Neck pain [Not Recovered/Not Resolved]
  - Tremor [Recovered/Resolved]
  - Asthenia [Not Recovered/Not Resolved]
  - Muscular weakness [Unknown]
  - Nicotine dependence [Unknown]
  - Vertigo [Recovered/Resolved]
  - Drug administration error [Unknown]
